FAERS Safety Report 18019301 (Version 1)
Quarter: 2020Q3

REPORT INFORMATION
  Report Type: Report from Study
  Country: MX (occurrence: MX)
  Receive Date: 20200714
  Receipt Date: 20200714
  Transmission Date: 20201103
  Serious: Yes (Other)
  Sender: FDA-Public Use
  Company Number: NVSC2020MX195633

PATIENT
  Sex: Male
  Weight: 85 kg

DRUGS (1)
  1. RITALIN LA [Suspect]
     Active Substance: METHYLPHENIDATE HYDROCHLORIDE
     Indication: ATTENTION DEFICIT HYPERACTIVITY DISORDER
     Dosage: 20 MG, BID
     Route: 048
     Dates: end: 20200707

REACTIONS (3)
  - Weight fluctuation [Recovering/Resolving]
  - Stress [Recovering/Resolving]
  - Ill-defined disorder [Recovering/Resolving]
